FAERS Safety Report 4352506-1 (Version None)
Quarter: 2004Q2

REPORT INFORMATION
  Report Type: 
  Country: None (occurrence: None)
  Receive Date: 20040409
  Receipt Date: 20040202
  Transmission Date: 20050107
  Serious: No
  Sender: FDA-Public Use
  Company Number: PHEH2004US00475

PATIENT
  Age: 36 Year
  Sex: Female

DRUGS (5)
  1. ELIDEL [Suspect]
     Indication: ECZEMA
     Dosage: PRN, TOPICAL
     Route: 061
     Dates: start: 20030101, end: 20040104
  2. PROTONIX [Concomitant]
  3. CELEBREX [Concomitant]
  4. SYNTHROID [Concomitant]
  5. GUAIFENESIN [Concomitant]

REACTIONS (1)
  - BURNING SENSATION [None]
